FAERS Safety Report 21069135 (Version 1)
Quarter: 2022Q3

REPORT INFORMATION
  Report Type: Spontaneous
  Country: US (occurrence: None)
  Receive Date: 20220711
  Receipt Date: 20220711
  Transmission Date: 20221026
  Serious: Yes (Life-Threatening, Hospitalization, Other)
  Sender: FDA-Public Use
  Company Number: None

PATIENT
  Age: 79 Year
  Sex: Female

DRUGS (14)
  1. VENCLEXTA [Suspect]
     Active Substance: VENETOCLAX
     Indication: Acute myeloid leukaemia
     Dosage: FREQUENCY : DAILY;?
     Route: 048
     Dates: start: 20220112, end: 20220701
  2. ACYCLOVIR [Concomitant]
     Active Substance: ACYCLOVIR
  3. ALBUTEROL [Concomitant]
     Active Substance: ALBUTEROL
  4. MONTELUKAST [Concomitant]
     Active Substance: MONTELUKAST SODIUM
  5. ONDANSETRON [Concomitant]
     Active Substance: ONDANSETRON
  6. TYLENOL [Concomitant]
     Active Substance: ACETAMINOPHEN
  7. DECITABINE [Concomitant]
     Active Substance: DECITABINE
  8. GUAIFENESIN [Concomitant]
     Active Substance: GUAIFENESIN
  9. INSULIN NOS [Concomitant]
     Active Substance: INSULIN NOS
  10. MELATONIN [Concomitant]
     Active Substance: MELATONIN
  11. POSACONAZOLE [Concomitant]
     Active Substance: POSACONAZOLE
  12. POTASSIUM [Concomitant]
     Active Substance: POTASSIUM
  13. psyllium fiber [Concomitant]
  14. DOCUSATE SODIUM\SENNOSIDES [Concomitant]
     Active Substance: DOCUSATE SODIUM\SENNOSIDES

REACTIONS (2)
  - Febrile neutropenia [None]
  - Pancytopenia [None]

NARRATIVE: CASE EVENT DATE: 20220314
